FAERS Safety Report 9392899 (Version 2)
Quarter: 2013Q3

REPORT INFORMATION
  Report Type: Spontaneous
  Country: US (occurrence: US)
  Receive Date: 20130710
  Receipt Date: 20130806
  Transmission Date: 20140515
  Serious: No
  Sender: FDA-Public Use
  Company Number: US-PFIZER INC-2013200582

PATIENT
  Age: 70 Year
  Sex: Male

DRUGS (7)
  1. SUTENT [Suspect]
     Indication: RENAL CANCER
     Dosage: 50 MG, UNK
     Dates: start: 20130618
  2. AMOXICILLIN [Concomitant]
     Dosage: UNK
  3. OMEGA 3 [Concomitant]
     Dosage: UNK
  4. ASPIR-LOW [Concomitant]
     Dosage: UNK
  5. HYDROCODONE W/ACETAMINOPHEN [Concomitant]
     Dosage: UNK
  6. OMEPRAZOLE [Concomitant]
     Dosage: UNK
  7. ZOLPIDEM TARTRATE [Concomitant]
     Dosage: UNK

REACTIONS (1)
  - Pruritus [Unknown]
